FAERS Safety Report 12124803 (Version 1)
Quarter: 2016Q1

REPORT INFORMATION
  Report Type: Spontaneous
  Country: US (occurrence: None)
  Receive Date: 20160226
  Receipt Date: 20160226
  Transmission Date: 20160526
  Serious: No
  Sender: FDA-Public Use
  Company Number: None

PATIENT
  Age: 38 Year
  Sex: Female

DRUGS (4)
  1. REFRESH [Concomitant]
     Active Substance: UNSPECIFIED INGREDIENT
  2. RESTASIS [Concomitant]
     Active Substance: CYCLOSPORINE
  3. LOTEMAX [Concomitant]
     Active Substance: LOTEPREDNOL ETABONATE
  4. IBRANCE [Suspect]
     Active Substance: PALBOCICLIB
     Indication: BREAST CANCER
     Dosage: 125MG DAIL X 12 PO
     Route: 048
     Dates: start: 20150613

REACTIONS (2)
  - Memory impairment [None]
  - Drug dose omission [None]

NARRATIVE: CASE EVENT DATE: 20160216
